FAERS Safety Report 15344583 (Version 1)
Quarter: 2018Q3

REPORT INFORMATION
  Report Type: Spontaneous
  Country: US (occurrence: US)
  Receive Date: 20180903
  Receipt Date: 20180903
  Transmission Date: 20181010
  Serious: No
  Sender: FDA-Public Use
  Company Number: US-SA-2018SA245024

PATIENT
  Age: 70 Year
  Sex: Male

DRUGS (2)
  1. PRALUENT [Suspect]
     Active Substance: ALIROCUMAB
     Indication: ARTERIOSCLEROSIS
     Dosage: 75 MG
     Route: 058
     Dates: start: 20180730, end: 20180730
  2. ALIROCUMAB PREFILLED SYRINGE [Suspect]
     Active Substance: ALIROCUMAB
     Dosage: 75 MG
     Route: 058
     Dates: start: 20180730, end: 20180730

REACTIONS (3)
  - Pruritus [Unknown]
  - Secretion discharge [Unknown]
  - Dysphonia [Unknown]
